FAERS Safety Report 11627721 (Version 1)
Quarter: 2015Q4

REPORT INFORMATION
  Report Type: Spontaneous
  Country: FR (occurrence: FR)
  Receive Date: 20151014
  Receipt Date: 20151014
  Transmission Date: 20160304
  Serious: Yes (Hospitalization)
  Sender: FDA-Public Use
  Company Number: FR-009507513-1510FRA005391

PATIENT
  Sex: Female

DRUGS (3)
  1. WYSTAMM [Suspect]
     Active Substance: RUPATADINE FUMARATE
     Indication: URTICARIA CHRONIC
     Dosage: UNK, 1 TO 4 TABLETS DAILY
     Route: 048
  2. AERIUS [Suspect]
     Active Substance: DESLORATADINE
     Indication: URTICARIA CHRONIC
     Dosage: UNK, WHEN REQUIRED
     Route: 048
  3. FEXOFENADINE [Suspect]
     Active Substance: FEXOFENADINE\FEXOFENADINE HYDROCHLORIDE
     Indication: URTICARIA CHRONIC
     Dosage: UNK, WHEN REQUIRED
     Route: 048

REACTIONS (2)
  - Tachycardia [Recovered/Resolved]
  - Hypertension [Recovered/Resolved]

NARRATIVE: CASE EVENT DATE: 2015
